FAERS Safety Report 6013604-X (Version None)
Quarter: 2008Q4

REPORT INFORMATION
  Report Type: 
  Country: None (occurrence: None)
  Receive Date: 20081219
  Receipt Date: 20080414
  Transmission Date: 20090506
  Serious: Yes (Death, Hospitalization)
  Sender: FDA-Public Use
  Company Number: ES-BAYER-200812975GPV

PATIENT
  Age: 60 Year
  Sex: Male
  Weight: 65 kg

DRUGS (28)
  1. CAMPATH [Suspect]
     Indication: ACUTE GRAFT VERSUS HOST DISEASE
     Route: 042
     Dates: start: 20071221, end: 20071225
  2. CAMPATH [Suspect]
     Route: 042
     Dates: start: 20071201, end: 20080116
  3. FLUDARABINE PHOSPHATE [Suspect]
     Indication: BONE MARROW CONDITIONING REGIMEN
     Route: 065
     Dates: start: 20070701
  4. MELPHALAN [Suspect]
     Indication: BONE MARROW CONDITIONING REGIMEN
     Route: 065
     Dates: start: 20070701
  5. CYCLOSPORINE [Concomitant]
     Indication: PROPHYLAXIS AGAINST GRAFT VERSUS HOST DISEASE
     Route: 065
  6. CYCLOSPORINE [Concomitant]
     Route: 065
  7. METHOTREXATE [Concomitant]
     Indication: PROPHYLAXIS AGAINST GRAFT VERSUS HOST DISEASE
     Route: 065
  8. VALGANCICLOVIR HCL [Concomitant]
     Indication: CYTOMEGALOVIRUS ANTIGEN POSITIVE
     Route: 048
     Dates: start: 20080101
  9. VALGANCICLOVIR HCL [Concomitant]
     Route: 065
  10. VALGANCICLOVIR HCL [Concomitant]
     Route: 065
  11. FOSCARNET [Concomitant]
     Indication: CYTOMEGALOVIRUS ANTIGEN POSITIVE
     Route: 065
  12. MEROPENEM [Concomitant]
     Indication: PNEUMONIA
     Route: 065
     Dates: start: 20070801
  13. TEICOPLANIN [Concomitant]
     Indication: PNEUMONIA
     Route: 065
     Dates: start: 20070801
  14. CASPOFUNGIN [Concomitant]
     Indication: PNEUMONIA
     Route: 065
     Dates: start: 20070801
  15. DEFIBROTIDE [Concomitant]
     Indication: VENOOCCLUSIVE LIVER DISEASE
     Route: 065
     Dates: start: 20070801
  16. PREDNISONE TAB [Concomitant]
     Indication: ACUTE GRAFT VERSUS HOST DISEASE
     Route: 065
     Dates: start: 20070905
  17. WHOLE BLOOD [Concomitant]
     Indication: PANCYTOPENIA
     Route: 042
     Dates: start: 20070901
  18. TAZOCEL [Concomitant]
     Indication: PYREXIA
     Route: 065
     Dates: start: 20071001
  19. TAZOCEL [Concomitant]
     Route: 065
     Dates: start: 20071208
  20. TEICOPLANIN [Concomitant]
     Indication: PYREXIA
     Route: 065
     Dates: start: 20071001
  21. TEICOPLANIN [Concomitant]
     Route: 065
     Dates: start: 20071208
  22. PLATELETS [Concomitant]
     Indication: PANCYTOPENIA
     Route: 042
     Dates: start: 20071001
  23. VORICONAZOLE [Concomitant]
     Indication: FUNGAL INFECTION
     Route: 065
     Dates: start: 20070101
  24. ITRACONAZOLE [Concomitant]
     Indication: FUNGAL INFECTION
  25. EPO-BETA [Concomitant]
     Indication: PANCYTOPENIA
     Route: 065
  26. NEUPOGEN [Concomitant]
     Indication: PANCYTOPENIA
     Route: 058
     Dates: start: 20080117, end: 20080204
  27. NEUPOGEN [Concomitant]
     Route: 065
     Dates: start: 20071001
  28. METHYLPREDNISOLONE 16MG TAB [Concomitant]
     Indication: ACUTE GRAFT VERSUS HOST DISEASE
     Route: 065

REACTIONS (8)
  - ACUTE GRAFT VERSUS HOST DISEASE [None]
  - ACUTE GRAFT VERSUS HOST DISEASE IN INTESTINE [None]
  - ACUTE GRAFT VERSUS HOST DISEASE IN LIVER [None]
  - ACUTE GRAFT VERSUS HOST DISEASE IN SKIN [None]
  - BONE MARROW FAILURE [None]
  - FUNGAL INFECTION [None]
  - PANCYTOPENIA [None]
  - SINUSITIS [None]
